FAERS Safety Report 12659524 (Version 2)
Quarter: 2017Q2

REPORT INFORMATION
  Report Type: Spontaneous
  Country: US (occurrence: US)
  Receive Date: 20160817
  Receipt Date: 20170518
  Transmission Date: 20170830
  Serious: Yes (Hospitalization, Other)
  Sender: FDA-Public Use
  Company Number: US-SA-2016SA147421

PATIENT
  Age: 62 Year
  Sex: Female

DRUGS (1)
  1. AUBAGIO [Suspect]
     Active Substance: TERIFLUNOMIDE
     Indication: MULTIPLE SCLEROSIS
     Route: 048
     Dates: start: 20151023

REACTIONS (6)
  - Ankle fracture [Unknown]
  - Myocardial infarction [Unknown]
  - Balance disorder [Unknown]
  - Lower limb fracture [Unknown]
  - Colitis [Unknown]
  - Headache [Unknown]

NARRATIVE: CASE EVENT DATE: 20170104
